FAERS Safety Report 7405602-6 (Version None)
Quarter: 2011Q2

REPORT INFORMATION
  Report Type: 
  Country: None (occurrence: None)
  Receive Date: 20110411
  Receipt Date: 20110404
  Transmission Date: 20111010
  Serious: Yes (Disabling)
  Sender: FDA-Public Use
  Company Number: PHHO2011PH05973

PATIENT
  Sex: Male
  Weight: 59 kg

DRUGS (11)
  1. ENALAPRIL MALEATE [Suspect]
     Indication: CARDIAC FAILURE CHRONIC
     Dosage: CODE NOT BROKEN
     Route: 048
     Dates: start: 20110324
  2. BLINDED NO TREATMENT RECEIVED [Suspect]
     Indication: CARDIAC FAILURE CHRONIC
     Dosage: CODE NOT BROKEN
     Route: 048
     Dates: start: 20110324
  3. OMEPRAZOLE [Concomitant]
     Dosage: UNK
  4. MULTI-VITAMIN [Concomitant]
     Dosage: UNK
  5. ASPIRIN [Concomitant]
     Dosage: UNK
  6. BLINDED LCZ696 [Suspect]
     Indication: CARDIAC FAILURE CHRONIC
     Dosage: CODE NOT BROKEN
     Route: 048
     Dates: start: 20110324
  7. CARVEDILOL [Concomitant]
     Dosage: UNK
  8. CLOPIDOGREL [Concomitant]
     Dosage: UNK
  9. ERDOSTEINE [Concomitant]
     Dosage: UNK
  10. FUROSEMIDE [Concomitant]
     Dosage: UNK
  11. ISORDIL [Concomitant]
     Dosage: UNK

REACTIONS (1)
  - CEREBROVASCULAR ACCIDENT [None]
